FAERS Safety Report 9897283 (Version 1)
Quarter: 2014Q1

REPORT INFORMATION
  Report Type: Spontaneous
  Country: PT (occurrence: PT)
  Receive Date: 20140214
  Receipt Date: 20140214
  Transmission Date: 20141002
  Serious: Yes (Other)
  Sender: FDA-Public Use
  Company Number: PT-ASTRAZENECA-2014SE09321

PATIENT
  Age: 76 Year
  Sex: Male

DRUGS (4)
  1. HYTACAND [Suspect]
     Indication: HYPERTENSION
     Route: 048
  2. EXXIV [Interacting]
     Route: 048
     Dates: start: 20140114, end: 20140121
  3. VISACOR [Concomitant]
     Indication: HYPERTENSION
     Route: 048
  4. ZYLORIC [Concomitant]
     Route: 048

REACTIONS (3)
  - Drug interaction [Unknown]
  - Drug ineffective [Unknown]
  - Hypertension [Recovered/Resolved]
